FAERS Safety Report 8814598 (Version 3)
Quarter: 2012Q4

REPORT INFORMATION
  Report Type: 
  Country: JP (occurrence: JP)
  Receive Date: 20120928
  Receipt Date: 20121123
  Transmission Date: 20130627
  Serious: Yes (Other)
  Sender: FDA-Public Use
  Company Number: PHHY2012JP084566

PATIENT
  Age: 82 Year
  Sex: Male

DRUGS (3)
  1. AFINITOR [Suspect]
     Indication: RENAL CELL CARCINOMA
     Dosage: 10 mg, Daily
     Route: 048
     Dates: start: 20120914, end: 20120920
  2. AFINITOR [Suspect]
     Dosage: 10 mg, Daily
     Route: 048
     Dates: start: 20120927
  3. HACHIAZULE [Concomitant]
     Indication: PROPHYLAXIS

REACTIONS (1)
  - Cognitive disorder [Recovering/Resolving]
